FAERS Safety Report 23884731 (Version 1)
Quarter: 2024Q2

REPORT INFORMATION
  Report Type: Spontaneous
  Country: US (occurrence: None)
  Receive Date: 20240522
  Receipt Date: 20240522
  Transmission Date: 20240716
  Serious: No
  Sender: FDA-Public Use
  Company Number: None

PATIENT

DRUGS (2)
  1. DOBUTAMINE HYDROCHLORIDE [Suspect]
     Active Substance: DOBUTAMINE HYDROCHLORIDE
     Dosage: OTHER STRENGTH : 250MG PER 250ML ;?
  2. DOBUTAMINE HYDROCHLORIDE [Suspect]
     Active Substance: DOBUTAMINE HYDROCHLORIDE
     Dosage: OTHER STRENGTH : 1000MG PER 250ML;?

REACTIONS (4)
  - Product label confusion [None]
  - Product packaging confusion [None]
  - Wrong product stored [None]
  - Product selection error [None]
